FAERS Safety Report 23204421 (Version 1)
Quarter: 2023Q4

REPORT INFORMATION
  Report Type: Spontaneous
  Country: GB (occurrence: GB)
  Receive Date: 20231120
  Receipt Date: 20231120
  Transmission Date: 20240110
  Serious: Yes (Other)
  Sender: FDA-Public Use
  Company Number: None

PATIENT
  Age: 69 Year
  Sex: Male
  Weight: 89 kg

DRUGS (14)
  1. AMLODIPINE [Suspect]
     Active Substance: AMLODIPINE BESYLATE
     Indication: Product used for unknown indication
     Route: 048
     Dates: start: 20230303
  2. ARIPIPRAZOLE [Suspect]
     Active Substance: ARIPIPRAZOLE
     Indication: Bipolar I disorder
     Route: 048
     Dates: start: 20231101
  3. ATORVASTATIN [Concomitant]
     Active Substance: ATORVASTATIN
     Dates: start: 20230303
  4. COLCHICINE [Concomitant]
     Active Substance: COLCHICINE
     Dates: start: 20230303
  5. COMIRNATY (TOZINAMERAN) [Concomitant]
     Active Substance: TOZINAMERAN
     Dosage: 1 DOSE
     Dates: start: 20231012, end: 20231012
  6. DIAZEPAM [Concomitant]
     Active Substance: DIAZEPAM
     Dates: start: 20231012
  7. FUROSEMIDE [Concomitant]
     Active Substance: FUROSEMIDE
     Dates: start: 20231021
  8. IBUPROFEN [Concomitant]
     Active Substance: IBUPROFEN
     Dosage: 200-400 MG
     Dates: start: 20231015
  9. OLANZAPINE [Concomitant]
     Active Substance: OLANZAPINE
     Dates: start: 20231008, end: 20231008
  10. PROCYCLIDINE [Concomitant]
     Active Substance: PROCYCLIDINE
     Dates: start: 20230303
  11. RAMIPRIL [Concomitant]
     Active Substance: RAMIPRIL
     Dates: start: 20231025
  12. SILDENAFIL [Concomitant]
     Active Substance: SILDENAFIL
     Dosage: HALF TO ONE TO BE TAKEN AS DIRECTED
     Dates: start: 20230804
  13. VALPROATE SODIUM [Concomitant]
     Active Substance: VALPROATE SODIUM
     Dates: start: 20230303
  14. ZOPICLONE [Concomitant]
     Active Substance: ZOPICLONE
     Dates: start: 20231008

REACTIONS (4)
  - Peripheral swelling [Recovered/Resolved]
  - Rash [Recovered/Resolved]
  - Drug interaction [Unknown]
  - Dry skin [Unknown]
